FAERS Safety Report 6080004-6 (Version None)
Quarter: 2009Q1

REPORT INFORMATION
  Report Type: 
  Country: None (occurrence: None)
  Receive Date: 20090217
  Receipt Date: 20090119
  Transmission Date: 20090719
  Serious: No
  Sender: FDA-Public Use
  Company Number: A0763950A

PATIENT
  Age: 76 Year
  Sex: Female

DRUGS (3)
  1. COREG CR [Suspect]
     Indication: HYPERTENSION
     Dosage: 10MG PER DAY
     Route: 048
     Dates: start: 20080201, end: 20081230
  2. GABAPENTIN [Concomitant]
  3. BI-PAP [Concomitant]

REACTIONS (6)
  - DRY MOUTH [None]
  - DYSPHONIA [None]
  - DYSPNOEA [None]
  - MICTURITION URGENCY [None]
  - SPEECH DISORDER [None]
  - SWELLING [None]
